FAERS Safety Report 6806369-2 (Version None)
Quarter: 2010Q2

REPORT INFORMATION
  Report Type: 
  Country: None (occurrence: None)
  Receive Date: 20100629
  Receipt Date: 20080202
  Transmission Date: 20101027
  Serious: No
  Sender: FDA-Public Use
  Company Number: US-PFIZER INC-2008011077

PATIENT
  Sex: Male
  Weight: 137.72 kg

DRUGS (6)
  1. TIKOSYN [Suspect]
     Indication: HEART RATE IRREGULAR
     Route: 048
     Dates: start: 20071114
  2. LOPRESSOR [Concomitant]
     Indication: CARDIOVERSION
  3. LISINOPRIL [Concomitant]
  4. CLONIDINE [Concomitant]
  5. PROTONIX [Concomitant]
  6. ALL OTHER THERAPEUTIC PRODUCTS [Concomitant]
     Indication: SLEEP APNOEA SYNDROME

REACTIONS (6)
  - DIARRHOEA [None]
  - DIZZINESS [None]
  - FATIGUE [None]
  - NAUSEA [None]
  - RESPIRATORY RATE DECREASED [None]
  - WEIGHT DECREASED [None]
